FAERS Safety Report 6322355-3 (Version None)
Quarter: 2009Q3

REPORT INFORMATION
  Report Type: 
  Country: None (occurrence: None)
  Receive Date: 20090824
  Receipt Date: 20090204
  Transmission Date: 20100115
  Serious: No
  Sender: FDA-Public Use
  Company Number: US-ABBOTT-09P-163-0501983-00

PATIENT
  Sex: Female

DRUGS (8)
  1. NIASPAN [Suspect]
     Indication: DRUG USE FOR UNKNOWN INDICATION
     Dates: start: 20090121
  2. COUMADIN [Concomitant]
     Indication: DRUG USE FOR UNKNOWN INDICATION
  3. ATENOLOL [Concomitant]
     Indication: DRUG USE FOR UNKNOWN INDICATION
  4. LASIX [Concomitant]
     Indication: DRUG USE FOR UNKNOWN INDICATION
  5. POTASSIUM CHLORIDE [Concomitant]
     Indication: DRUG USE FOR UNKNOWN INDICATION
  6. OMEPRAZOLE [Concomitant]
     Indication: DRUG USE FOR UNKNOWN INDICATION
  7. SYNTHROID [Concomitant]
     Indication: DRUG USE FOR UNKNOWN INDICATION
  8. LIPITOR [Concomitant]
     Indication: DRUG USE FOR UNKNOWN INDICATION

REACTIONS (1)
  - BLOOD GLUCOSE INCREASED [None]
